FAERS Safety Report 8268598-3 (Version None)
Quarter: 2012Q2

REPORT INFORMATION
  Report Type: 
  Country: None (occurrence: None)
  Receive Date: 20120409
  Receipt Date: 20120319
  Transmission Date: 20120825
  Serious: Yes (Hospitalization)
  Sender: FDA-Public Use
  Company Number: ES-UCBSA-041844

PATIENT
  Age: 25 Year
  Sex: Male
  Weight: 90 kg

DRUGS (9)
  1. LACOSAMIDE [Suspect]
     Dosage: DAILY DOSE 300 MG
     Route: 048
     Dates: start: 20110819, end: 20110801
  2. LACOSAMIDE [Suspect]
     Dosage: DOSE 100 MG
     Route: 048
     Dates: start: 20110805, end: 20110801
  3. AMOXICILLIN AND CLAVULANATE POTASSIUM [Concomitant]
     Indication: ODYNOPHAGIA
     Dosage: EVERY 8 HOURS
     Dates: start: 20110818, end: 20110921
  4. LACOSAMIDE [Suspect]
     Dosage: DAILY DOSE 200 MG
     Route: 048
     Dates: start: 20110812, end: 20110801
  5. LAMICTAL [Concomitant]
     Indication: EPILEPSY
     Route: 048
     Dates: start: 20100510
  6. KEPPRA [Concomitant]
     Indication: EPILEPSY
     Route: 048
     Dates: start: 20080813
  7. AMOXICILLIN AND CLAVULANATE POTASSIUM [Concomitant]
     Indication: PYREXIA
     Dosage: EVERY 8 HOURS
     Dates: start: 20110818, end: 20110921
  8. AMOXICILLIN AND CLAVULANATE POTASSIUM [Concomitant]
     Indication: MALAISE
     Dosage: EVERY 8 HOURS
     Dates: start: 20110818, end: 20110921
  9. LACOSAMIDE [Suspect]
     Indication: PARTIAL SEIZURES
     Dates: start: 20110826, end: 20110921

REACTIONS (3)
  - FEBRILE NEUTROPENIA [None]
  - URINARY TRACT INFECTION [None]
  - TONSILLITIS [None]
